FAERS Safety Report 10713200 (Version 1)
Quarter: 2015Q1

REPORT INFORMATION
  Report Type: Spontaneous
  Country: US (occurrence: None)
  Receive Date: 20150114
  Receipt Date: 20150114
  Transmission Date: 20150721
  Serious: No
  Sender: FDA-Public Use
  Company Number: None

PATIENT
  Age: 75 Year

DRUGS (1)
  1. LEVOTHYROXINE [Suspect]
     Active Substance: LEVOTHYROXINE
     Indication: BLOOD THYROID STIMULATING HORMONE INCREASED
     Route: 048
     Dates: start: 20141229, end: 20150109

REACTIONS (5)
  - Swelling face [None]
  - Pyrexia [None]
  - Weight increased [None]
  - Weight decreased [None]
  - Myalgia [None]

NARRATIVE: CASE EVENT DATE: 20150109
